FAERS Safety Report 18343116 (Version 1)
Quarter: 2020Q4

REPORT INFORMATION
  Report Type: Spontaneous
  Country: US (occurrence: US)
  Receive Date: 20201002
  Receipt Date: 20201002
  Transmission Date: 20210113
  Serious: Yes (Other)
  Sender: FDA-Public Use
  Company Number: None

PATIENT
  Age: 33 Year
  Sex: Female
  Weight: 75.6 kg

DRUGS (5)
  1. RINVOQ [Concomitant]
     Active Substance: UPADACITINIB
  2. ALLEGRA [Concomitant]
     Active Substance: FEXOFENADINE HYDROCHLORIDE
  3. PREDNISONE. [Concomitant]
     Active Substance: PREDNISONE
  4. ZELNORM [Concomitant]
     Active Substance: TEGASEROD MALEATE
  5. CHLORPHEN-12 [Suspect]
     Active Substance: CHLORPHENIRAMINE MALEATE
     Indication: SINUSITIS
     Dosage: ?          QUANTITY:1 TABLET(S);?
     Route: 048
     Dates: start: 20201001, end: 20201002

REACTIONS (4)
  - Dizziness [None]
  - Depressed level of consciousness [None]
  - Somnolence [None]
  - Disturbance in attention [None]

NARRATIVE: CASE EVENT DATE: 20201002
